FAERS Safety Report 9606924 (Version 3)
Quarter: 2014Q2

REPORT INFORMATION
  Report Type: Spontaneous
  Country: US (occurrence: US)
  Receive Date: 20131008
  Receipt Date: 20140519
  Transmission Date: 20141212
  Serious: No
  Sender: FDA-Public Use
  Company Number: US-AMGEN-USASP2013067192

PATIENT
  Age: 68 Year
  Sex: Female
  Weight: 57.14 kg

DRUGS (5)
  1. PROLIA [Suspect]
     Indication: OSTEOPOROSIS POSTMENOPAUSAL
     Dosage: 60 MG, Q6MO
     Route: 058
     Dates: start: 20121212
  2. VITAMIN K                          /00032401/ [Concomitant]
     Dosage: UNK
  3. POSTURE D                          /00207901/ [Concomitant]
     Dosage: UNK
  4. CALCIUM [Concomitant]
     Dosage: 600 UNK, BID
     Route: 048
  5. VITAMIN D                          /00107901/ [Concomitant]
     Dosage: 7000 IU, QD

REACTIONS (8)
  - Nocturia [Recovering/Resolving]
  - Micturition urgency [Recovering/Resolving]
  - Blood cholesterol increased [Recovering/Resolving]
  - Nausea [Recovering/Resolving]
  - Myalgia [Recovering/Resolving]
  - Insomnia [Recovering/Resolving]
  - Musculoskeletal pain [Not Recovered/Not Resolved]
  - Pain in extremity [Not Recovered/Not Resolved]
